FAERS Safety Report 8048759-9 (Version None)
Quarter: 2012Q1

REPORT INFORMATION
  Report Type: 
  Country: None (occurrence: None)
  Receive Date: 20120110
  Receipt Date: 20111227
  Transmission Date: 20120608
  Serious: Yes (Death, Other)
  Sender: FDA-Public Use
  Company Number: 2012MA000175

PATIENT
  Age: 54 Year
  Sex: Male

DRUGS (4)
  1. CISPLATIN [Suspect]
     Indication: OESOPHAGEAL CARCINOMA
     Dosage: 80 MG/M2 ON DAY 1;Q4W
  2. GRANULOCYTE-COLONY STIMULATING FACTOR (NO PREF. NAME) [Suspect]
     Indication: NEUTROPENIA
  3. IRINOTECAN HYDROCHLORIDE [Suspect]
     Indication: OESOPHAGEAL CARCINOMA
     Dosage: 60 MG/M2 ON DAYS 1, 8, AND 15
  4. ETOPOSIDE [Suspect]
     Indication: OESOPHAGEAL CARCINOMA
     Dosage: 100 MG/M2 ON DAYS 1, 2 AND 3;Q4W

REACTIONS (9)
  - METASTASES TO CENTRAL NERVOUS SYSTEM [None]
  - THERAPEUTIC RESPONSE DECREASED [None]
  - METASTASES TO LIVER [None]
  - METASTASES TO LUNG [None]
  - NEUTROPENIA [None]
  - OESOPHAGEAL CARCINOMA RECURRENT [None]
  - NEOPLASM PROGRESSION [None]
  - METASTASES TO LYMPH NODES [None]
  - METASTASES TO BONE [None]
